FAERS Safety Report 6966787-9 (Version None)
Quarter: 2010Q3

REPORT INFORMATION
  Report Type: 
  Country: None (occurrence: None)
  Receive Date: 20100906
  Receipt Date: 20100823
  Transmission Date: 20110219
  Serious: Yes (Other)
  Sender: FDA-Public Use
  Company Number: PHHY2010BR56503

PATIENT
  Age: 70 Year
  Sex: Female

DRUGS (2)
  1. CODATEN [Suspect]
     Indication: ARTHRALGIA
     Dosage: UNK
     Route: 048
  2. VALIUM [Concomitant]
     Dosage: 10 MG
     Route: 048
     Dates: start: 19990101

REACTIONS (5)
  - INGUINAL HERNIA [None]
  - OBESITY SURGERY [None]
  - OSTEOARTHRITIS [None]
  - WEIGHT ABNORMAL [None]
  - WEIGHT DECREASED [None]
